FAERS Safety Report 11519450 (Version 1)
Quarter: 2015Q3

REPORT INFORMATION
  Report Type: Spontaneous
  Country: BR (occurrence: BR)
  Receive Date: 20150918
  Receipt Date: 20150918
  Transmission Date: 20151125
  Serious: Yes (Other)
  Sender: FDA-Public Use
  Company Number: PHHY2015BR110204

PATIENT
  Sex: Female

DRUGS (1)
  1. SERTRALINE HYDROCHLORIDE. [Suspect]
     Active Substance: SERTRALINE HYDROCHLORIDE
     Indication: DEPRESSION
     Dosage: 25 MG, QD
     Route: 048
     Dates: start: 20150821

REACTIONS (16)
  - Somnolence [Unknown]
  - Swelling face [Unknown]
  - Feeling abnormal [Unknown]
  - Dizziness [Unknown]
  - Pain in extremity [Unknown]
  - Agitation [Unknown]
  - Restlessness [Unknown]
  - Eye swelling [Unknown]
  - Dry mouth [Unknown]
  - Nightmare [Unknown]
  - Blood pressure increased [Unknown]
  - Mental status changes [Unknown]
  - Tremor [Unknown]
  - Alopecia [Unknown]
  - Fatigue [Unknown]
  - Dyskinesia [Unknown]
